FAERS Safety Report 7576487-2 (Version None)
Quarter: 2011Q2

REPORT INFORMATION
  Report Type: 
  Country: None (occurrence: None)
  Receive Date: 20110628
  Receipt Date: 20090809
  Transmission Date: 20111010
  Serious: Yes (Death, Hospitalization, Other)
  Sender: FDA-Public Use
  Company Number: US-BAYER-200929847NA

PATIENT
  Age: 57 Year
  Sex: Female
  Weight: 107.48 kg

DRUGS (31)
  1. TRASYLOL [Suspect]
     Indication: MITRAL VALVE REPAIR
     Dosage: 1 ML, ONCE (INITIAL)
     Route: 042
     Dates: start: 20050801, end: 20050801
  2. COUMADIN [Concomitant]
     Dosage: 2.5 MG, QD
     Route: 048
     Dates: end: 20050729
  3. NITROGLYCERIN [Concomitant]
     Dosage: 30 MCG/HR
     Route: 042
     Dates: start: 20050728
  4. NITROGLYCERIN [Concomitant]
     Dosage: UNK
     Route: 042
     Dates: start: 20050801
  5. PROTAMINE SULFATE [Concomitant]
     Dosage: UNK
     Route: 042
     Dates: start: 20050801, end: 20050801
  6. RED BLOOD CELLS [Concomitant]
     Dosage: 1 U, UNK
     Route: 042
     Dates: start: 20050801, end: 20050801
  7. ZAROXOLYN [Concomitant]
     Dosage: 5 MG, QD
     Route: 048
     Dates: start: 20040329
  8. AMIODARONE HCL [Concomitant]
     Dosage: UNK
     Route: 042
     Dates: start: 20050801
  9. LIDOCAINE [Concomitant]
     Dosage: UNK
     Route: 042
     Dates: start: 20050801, end: 20050801
  10. DIGOXIN [Concomitant]
     Dosage: UNK
     Route: 042
     Dates: start: 20050801, end: 20050801
  11. ANCEF [Concomitant]
     Dosage: 2 G, (ON CALL TO OPERATING ROOM)
     Route: 042
     Dates: start: 20050801
  12. PROPOFOL [Concomitant]
     Dosage: UNK
     Route: 042
     Dates: start: 20050801
  13. CALCIUM CHLORIDE [Concomitant]
     Dosage: UNK
     Route: 042
     Dates: start: 20050801, end: 20050801
  14. FRESH FROZEN PLASMA [Concomitant]
     Dosage: 5 U, UNK
     Route: 042
     Dates: start: 20050801, end: 20050801
  15. LASIX [Concomitant]
     Dosage: 40 MG, QD
     Route: 048
  16. EPINEPHRINE [Concomitant]
     Dosage: UNK
     Route: 042
     Dates: start: 20050801, end: 20050801
  17. DOPAMINE HCL [Concomitant]
     Dosage: UNK
     Dates: start: 20050801, end: 20050801
  18. REGULAR INSULIN [Concomitant]
     Dosage: UNK
     Route: 042
     Dates: start: 20050801
  19. PLATELETS [Concomitant]
     Dosage: 24 U, UNK
     Route: 042
     Dates: start: 20050801, end: 20050801
  20. TRASYLOL [Suspect]
     Indication: TRICUSPID VALVE REPAIR
     Dosage: 200 ML (LOADING)
     Route: 042
     Dates: start: 20050801, end: 20050801
  21. MILRINONE [Concomitant]
     Dosage: UNK
     Route: 042
     Dates: start: 20050801, end: 20050801
  22. DIGOXIN [Concomitant]
     Dosage: 0.25 MG, QD
     Route: 048
  23. HYZAAR [Concomitant]
     Dosage: 50/12.5 MG QD
     Route: 048
     Dates: start: 19990501
  24. ESMOLOL [Concomitant]
     Dosage: UNK
     Route: 042
     Dates: start: 20050801, end: 20050801
  25. LEVOPHED [Concomitant]
     Dosage: UNK
     Route: 042
     Dates: start: 20050801
  26. FUROSEMIDE [Concomitant]
     Dosage: UNK
     Route: 042
     Dates: start: 20050801, end: 20050801
  27. CRYOPRECIPITATES [Concomitant]
     Dosage: 10 U, UNK
     Route: 042
     Dates: start: 20050801, end: 20050801
  28. TRASYLOL [Suspect]
     Dosage: 50 ML/HR (INFUSION)
     Route: 042
     Dates: start: 20050801, end: 20050801
  29. CELEBREX [Concomitant]
     Dosage: 200 MG, PRN
     Route: 048
  30. BUMEX [Concomitant]
     Dosage: UNK
     Route: 042
     Dates: start: 20050801, end: 20050801
  31. VASOPRESSIN [Concomitant]
     Dosage: UNK
     Route: 042
     Dates: start: 20050801

REACTIONS (12)
  - PAIN [None]
  - RENAL FAILURE [None]
  - DEATH [None]
  - ANXIETY [None]
  - UNEVALUABLE EVENT [None]
  - ANHEDONIA [None]
  - EMOTIONAL DISTRESS [None]
  - FEAR [None]
  - RENAL IMPAIRMENT [None]
  - RENAL INJURY [None]
  - INJURY [None]
  - STRESS [None]
